FAERS Safety Report 17102928 (Version 1)
Quarter: 2019Q4

REPORT INFORMATION
  Report Type: Spontaneous
  Country: US (occurrence: US)
  Receive Date: 20191106
  Receipt Date: 20191106
  Transmission Date: 20200122
  Serious: Yes (Hospitalization)
  Sender: FDA-Public Use
  Company Number: None

PATIENT
  Age: 49 Year
  Sex: Male
  Weight: 71.2 kg

DRUGS (4)
  1. FOLFIRI [Concomitant]
     Active Substance: FLUOROURACIL\IRINOTECAN\LEUCOVORIN
  2. APIXABAN [Suspect]
     Active Substance: APIXABAN
     Indication: DEEP VEIN THROMBOSIS
  3. AVASTIN [Concomitant]
     Active Substance: BEVACIZUMAB
  4. APIXABAN [Suspect]
     Active Substance: APIXABAN
     Indication: PHYSICAL EXAMINATION
     Route: 048
     Dates: start: 20190628

REACTIONS (4)
  - Nausea [None]
  - Asthenia [None]
  - Diarrhoea [None]
  - Vomiting [None]

NARRATIVE: CASE EVENT DATE: 20191103
